FAERS Safety Report 21125490 (Version 1)
Quarter: 2022Q3

REPORT INFORMATION
  Report Type: Spontaneous
  Country: US (occurrence: US)
  Receive Date: 20220725
  Receipt Date: 20220725
  Transmission Date: 20221027
  Serious: No
  Sender: FDA-Public Use
  Company Number: US-MEDEXUS PHARMA, INC.-2022MED00261

PATIENT
  Age: 42 Year
  Sex: Female
  Weight: 81.633 kg

DRUGS (1)
  1. RASUVO [Suspect]
     Active Substance: METHOTREXATE SODIUM
     Indication: Rheumatoid arthritis
     Dosage: 20 MG INJECTED IN EITHER THE LEG OR ABDOMEN, 1X/WEEK ON SUNDAYS

REACTIONS (2)
  - Pain in extremity [Not Recovered/Not Resolved]
  - Product dose omission issue [Not Recovered/Not Resolved]

NARRATIVE: CASE EVENT DATE: 20220601
